FAERS Safety Report 7668532-0 (Version None)
Quarter: 2011Q3

REPORT INFORMATION
  Report Type: 
  Country: None (occurrence: None)
  Receive Date: 20110808
  Receipt Date: 20110729
  Transmission Date: 20111222
  Serious: Yes (Hospitalization, Other)
  Sender: FDA-Public Use
  Company Number: US-BAYER-2011-050464

PATIENT
  Sex: Male

DRUGS (3)
  1. NEXAVAR [Suspect]
     Dosage: 200 MG, EVERY OTHER DAY
     Dates: start: 20110718
  2. NEXAVAR [Suspect]
     Indication: HEPATIC NEOPLASM MALIGNANT
     Dosage: 400 MG, QD
     Dates: start: 20110531, end: 20110605
  3. NEXAVAR [Suspect]
     Dosage: 200 MG, QD
     Dates: start: 20110614

REACTIONS (7)
  - NAUSEA [None]
  - JAUNDICE [None]
  - VOMITING [None]
  - PANCREATITIS [None]
  - BLOOD PRESSURE INCREASED [None]
  - HYPERAMMONAEMIA [None]
  - PANCREATIC DISORDER [None]
